FAERS Safety Report 21136647 (Version 1)
Quarter: 2022Q3

REPORT INFORMATION
  Report Type: Spontaneous
  Country: US (occurrence: None)
  Receive Date: 20220726
  Receipt Date: 20220726
  Transmission Date: 20221026
  Serious: Yes (Life-Threatening)
  Sender: FDA-Public Use
  Company Number: None

PATIENT
  Age: 74 Year
  Sex: Male

DRUGS (1)
  1. FINASTERIDE [Suspect]
     Active Substance: FINASTERIDE
     Route: 048
     Dates: start: 20220505, end: 20220507

REACTIONS (3)
  - Throat tightness [None]
  - Dyspnoea [None]
  - Anoxia [None]

NARRATIVE: CASE EVENT DATE: 20220511
